FAERS Safety Report 6595427-6 (Version None)
Quarter: 2010Q1

REPORT INFORMATION
  Report Type: 
  Country: None (occurrence: None)
  Receive Date: 20100222
  Receipt Date: 20100222
  Transmission Date: 20100710
  Serious: Yes (Life-Threatening)
  Sender: FDA-Public Use
  Company Number: None

PATIENT
  Age: 60 Year
  Sex: Female
  Weight: 59.8748 kg

DRUGS (1)
  1. MAALOX TOTAL RELIEF [Suspect]
     Indication: DYSPEPSIA
     Dosage: TOOK THREE TIMES 1X SAT. 2X SUN.
     Dates: start: 20100206, end: 20100207

REACTIONS (4)
  - ABDOMINAL PAIN [None]
  - FEAR [None]
  - MELAENA [None]
  - PRODUCT QUALITY ISSUE [None]
